FAERS Safety Report 8397821 (Version 9)
Quarter: 2014Q1

REPORT INFORMATION
  Report Type: Report from Study
  Country: IT (occurrence: IT)
  Receive Date: 20120209
  Receipt Date: 20140303
  Transmission Date: 20141002
  Serious: Yes (Hospitalization)
  Sender: FDA-Public Use
  Company Number: IT-ROCHE-1033032

PATIENT
  Age: 63 Year
  Sex: Female
  Weight: 80 kg

DRUGS (9)
  1. VISMODEGIB [Suspect]
     Indication: BASAL CELL CARCINOMA
     Dosage: TAKEN DAILY, LAST DOSE PRIOR TO HEPATOTOXICITY: 18/JAN/2012
     Route: 048
     Dates: start: 20111125, end: 201201
  2. VISMODEGIB [Suspect]
     Route: 065
     Dates: start: 20120222
  3. DULOXETINE [Suspect]
     Indication: PRODUCT USED FOR UNKNOWN INDICATION
     Route: 065
     Dates: start: 20070127, end: 20120128
  4. EUTIROX [Concomitant]
     Indication: HYPOTHYROIDISM
     Route: 065
     Dates: start: 200801
  5. OMEPRAZOLE [Concomitant]
     Indication: SUPPORTIVE CARE
     Route: 065
     Dates: start: 20120122, end: 20120127
  6. PREDNISONE [Concomitant]
     Indication: SUPPORTIVE CARE
     Route: 065
     Dates: start: 20120122, end: 20120127
  7. XANAX [Concomitant]
     Dosage: 0.50
     Route: 065
     Dates: start: 20121210, end: 20130116
  8. AMPICILLINE [Concomitant]
     Indication: CYSTITIS
     Route: 065
     Dates: start: 20130304, end: 20130310
  9. AZITROMICINA [Concomitant]
     Route: 065
     Dates: start: 20130626, end: 20130701

REACTIONS (1)
  - Hepatotoxicity [Recovered/Resolved]
